FAERS Safety Report 8716298 (Version 3)
Quarter: 2014Q4

REPORT INFORMATION
  Report Type: Spontaneous
  Country: US (occurrence: US)
  Receive Date: 20120810
  Receipt Date: 20141016
  Transmission Date: 20150529
  Serious: Yes (Hospitalization, Other)
  Sender: FDA-Public Use
  Company Number: US-009507513-2012SP023039

PATIENT
  Sex: Female
  Weight: 90.7 kg

DRUGS (2)
  1. PREDNISONE. [Concomitant]
     Active Substance: PREDNISONE
     Indication: AUTOIMMUNE DISORDER
     Dosage: 5 MG, QD
     Route: 048
     Dates: start: 2001
  2. NUVARING [Suspect]
     Active Substance: ETHINYL ESTRADIOL\ETONOGESTREL
     Indication: CONTRACEPTION
     Dosage: 0.12-0.015 MG/24HR, IN 3 WEEKS AND REMOVE ONE WEEK
     Route: 067
     Dates: start: 2008, end: 2010

REACTIONS (17)
  - Thrombosis [Unknown]
  - Subarachnoid haemorrhage [Unknown]
  - Disturbance in attention [Unknown]
  - Umbilical erythema [Unknown]
  - Pre-eclampsia [Unknown]
  - Emotional disorder [Unknown]
  - Anxiety [Unknown]
  - Abortion spontaneous [Recovered/Resolved]
  - Headache [Unknown]
  - Unintended pregnancy [Unknown]
  - Superior sagittal sinus thrombosis [Unknown]
  - Seizure [Unknown]
  - Nausea [Unknown]
  - Vomiting [Unknown]
  - Antiphospholipid syndrome [Unknown]
  - Sinus tachycardia [Unknown]
  - Insomnia [Unknown]

NARRATIVE: CASE EVENT DATE: 2008
